FAERS Safety Report 7402320-5 (Version None)
Quarter: 2011Q1

REPORT INFORMATION
  Report Type: 
  Country: None (occurrence: None)
  Receive Date: 20110330
  Receipt Date: 20110318
  Transmission Date: 20110831
  Serious: Yes (Hospitalization, Disabling)
  Sender: FDA-Public Use
  Company Number: IDA-00517

PATIENT
  Age: 46 Year
  Sex: Female

DRUGS (4)
  1. INDERAL [Suspect]
     Indication: ARRHYTHMIA
     Dosage: 10 MG TID ORAL FORMULATION: TABLET
     Route: 048
     Dates: start: 20070101, end: 20110313
  2. (ALPRAZOLAM) [Concomitant]
  3. PHARMATON (CAFFEINE DISODIUM METANEARSONATE, NICOTINAMIDE, PYRIDOXINE [Concomitant]
  4. (CLOMIPRAMINE) [Concomitant]

REACTIONS (3)
  - DIZZINESS [None]
  - FATIGUE [None]
  - DYSPNOEA [None]
